FAERS Safety Report 5749860-2 (Version None)
Quarter: 2008Q2

REPORT INFORMATION
  Report Type: 
  Country: None (occurrence: None)
  Receive Date: 20080527
  Receipt Date: 20080513
  Transmission Date: 20081010
  Serious: Yes (Death)
  Sender: FDA-Public Use
  Company Number: CA-ROCHE-564563

PATIENT
  Sex: Male

DRUGS (1)
  1. FUZEON [Suspect]
     Dosage: FORM: VIAL
     Route: 058
     Dates: start: 20070821

REACTIONS (6)
  - ABDOMINAL PAIN UPPER [None]
  - BILIARY CANCER METASTATIC [None]
  - HAEMATURIA [None]
  - MALAISE [None]
  - PRESYNCOPE [None]
  - RECTAL HAEMORRHAGE [None]
